FAERS Safety Report 15247643 (Version 2)
Quarter: 2018Q3

REPORT INFORMATION
  Report Type: Report from Study
  Country: None (occurrence: CH)
  Receive Date: 20180807
  Receipt Date: 20180811
  Transmission Date: 20181010
  Serious: No
  Sender: FDA-Public Use
  Company Number: CH-ABBVIE-18K-151-2323835-00

PATIENT
  Sex: Female

DRUGS (4)
  1. DUODOPA [Suspect]
     Active Substance: CARBIDOPA\LEVODOPA
     Indication: PARKINSON^S DISEASE
     Dosage: MORNING DOSE 3.1ML, CONTINUOUS RATE 1.4ML/H, EXTRA DOSE 0.5ML, 16H THERAPY
     Route: 050
     Dates: start: 20160824
  2. DUODOPA [Suspect]
     Active Substance: CARBIDOPA\LEVODOPA
     Dosage: MD: 3.2ML, CRD: 1.3ML/H, ED: 0.5ML, BLOCKING TIME 60 MINUTES, 16H THERAPY
     Route: 050
     Dates: start: 20180202, end: 20180413
  3. DUODOPA [Suspect]
     Active Substance: CARBIDOPA\LEVODOPA
     Dosage: MD: 3.0ML, CRD: 1.2ML/H, ED: 0.5ML, 16H THERAPY, BLOCKING TIME 60 MINUTES
     Route: 050
     Dates: start: 20180413
  4. DUODOPA [Suspect]
     Active Substance: CARBIDOPA\LEVODOPA
     Dosage: MORNING DOSE: 2.7ML CONTINUOUS DOSE: 1.0ML/H EXTRA DOSE: 0.5ML
     Route: 050
     Dates: start: 20180416

REACTIONS (2)
  - Aggression [Recovered/Resolved]
  - Hyperkinesia [Recovered/Resolved]
